FAERS Safety Report 4574465-9 (Version None)
Quarter: 2005Q1

REPORT INFORMATION
  Report Type: 
  Country: None (occurrence: None)
  Receive Date: 20050208
  Receipt Date: 20010917
  Transmission Date: 20050727
  Serious: No
  Sender: FDA-Public Use
  Company Number: US-GLAXOSMITHKLINE-A0352779A

PATIENT
  Age: 34 Year
  Sex: Female
  Weight: 61.22 kg

DRUGS (1)
  1. PAXIL [Suspect]
     Indication: DEPRESSION
     Dosage: 20MG PER DAY
     Route: 048
     Dates: start: 19980901, end: 20010908

REACTIONS (18)
  - ABDOMINAL PAIN [None]
  - AGITATION [None]
  - ASTHENIA [None]
  - BALANCE DISORDER [None]
  - CONFUSIONAL STATE [None]
  - DIZZINESS [None]
  - DRUG WITHDRAWAL SYNDROME [None]
  - FEELING ABNORMAL [None]
  - HEADACHE [None]
  - HYPERACUSIS [None]
  - INFLUENZA [None]
  - NAUSEA [None]
  - PARAESTHESIA [None]
  - PERFORMANCE STATUS DECREASED [None]
  - PHOTOSENSITIVITY REACTION [None]
  - PREGNANCY [None]
  - VERTIGO [None]
  - VOMITING [None]
